FAERS Safety Report 10152413 (Version 1)
Quarter: 2014Q2

REPORT INFORMATION
  Report Type: Spontaneous
  Country: ES (occurrence: ES)
  Receive Date: 20140505
  Receipt Date: 20140505
  Transmission Date: 20141212
  Serious: Yes (Hospitalization)
  Sender: FDA-Public Use
  Company Number: ES-SA-2014SA052328

PATIENT
  Age: 50 Year
  Sex: Male

DRUGS (14)
  1. SEGURIL [Suspect]
     Indication: CARDIAC FAILURE CONGESTIVE
     Dosage: 1-0-0
     Route: 048
     Dates: start: 2012, end: 20130627
  2. BISOPROLOL [Interacting]
     Indication: CARDIAC FAILURE CONGESTIVE
     Dosage: 1-0-0
     Route: 048
     Dates: start: 2012
  3. ENALAPRIL [Interacting]
     Indication: CARDIAC FAILURE CONGESTIVE
     Dosage: 1-0-0
     Route: 048
     Dates: start: 2012
  4. EPLERENONE [Interacting]
     Indication: CARDIAC FAILURE CONGESTIVE
     Dosage: 1-0-0
     Route: 048
     Dates: start: 20130620, end: 20130627
  5. METFORMINA [Concomitant]
     Indication: TYPE 2 DIABETES MELLITUS
     Dosage: 1-1-1
     Route: 048
     Dates: start: 2010
  6. LANTUS [Concomitant]
     Indication: TYPE 2 DIABETES MELLITUS
     Dosage: 0-0-10
     Route: 058
     Dates: start: 2010
  7. SITAGLIPTIN PHOSPHATE [Concomitant]
     Indication: TYPE 2 DIABETES MELLITUS
     Dosage: 1-0-0
     Route: 048
     Dates: start: 2012
  8. SINTROM [Concomitant]
     Indication: ATRIAL FIBRILLATION
     Dosage: SP
     Route: 048
     Dates: start: 2010
  9. SECALIP [Concomitant]
     Indication: DYSLIPIDAEMIA
     Dosage: 250MG
     Route: 048
     Dates: start: 2010
  10. OMEPRAZOLE [Concomitant]
     Indication: PROPHYLAXIS AGAINST GASTROINTESTINAL ULCER
     Dosage: 1CP
     Route: 048
     Dates: start: 2010
  11. CRESTOR [Concomitant]
     Indication: DYSLIPIDAEMIA
     Dosage: 0-0-1
     Route: 048
     Dates: start: 2010
  12. KEPPRA [Concomitant]
     Indication: CONVULSION
     Dosage: 1-0-1
     Route: 048
     Dates: start: 201210
  13. DIGOXIN [Concomitant]
     Indication: ATRIAL FIBRILLATION
     Dosage: 1CP
     Route: 048
     Dates: start: 2010
  14. MIRTAZAPINE [Concomitant]
     Indication: DEPRESSION
     Dosage: 0-0-1
     Route: 048
     Dates: start: 201210

REACTIONS (4)
  - Renal failure acute [Recovered/Resolved]
  - Drug interaction [Unknown]
  - Hyperkalaemia [Recovered/Resolved]
  - Hypotension [Recovered/Resolved]
